FAERS Safety Report 7655588-4 (Version None)
Quarter: 2011Q3

REPORT INFORMATION
  Report Type: 
  Country: None (occurrence: None)
  Receive Date: 20110804
  Receipt Date: 20110801
  Transmission Date: 20111222
  Serious: Yes (Death, Other)
  Sender: FDA-Public Use
  Company Number: PHHY2011US69055

PATIENT
  Sex: Male
  Weight: 70.295 kg

DRUGS (1)
  1. EXJADE [Suspect]
     Indication: ACUTE MYELOID LEUKAEMIA
     Dosage: 1500 MG, DAILY
     Route: 048
     Dates: start: 20110114

REACTIONS (2)
  - RENAL FAILURE [None]
  - MULTI-ORGAN FAILURE [None]
